FAERS Safety Report 18318433 (Version 2)
Quarter: 2020Q3

REPORT INFORMATION
  Report Type: Spontaneous
  Country: US (occurrence: US)
  Receive Date: 20200928
  Receipt Date: 20200930
  Transmission Date: 20201103
  Serious: Yes (Other)
  Sender: FDA-Public Use
  Company Number: US-ELI_LILLY_AND_COMPANY-US202009007436

PATIENT
  Sex: Female

DRUGS (1)
  1. VERZENIO [Suspect]
     Active Substance: ABEMACICLIB
     Indication: PRODUCT USED FOR UNKNOWN INDICATION
     Dosage: 150 MG, BID
     Route: 048

REACTIONS (15)
  - Taste disorder [Not Recovered/Not Resolved]
  - Anosmia [Not Recovered/Not Resolved]
  - Feeling abnormal [Recovering/Resolving]
  - Chest pain [Recovering/Resolving]
  - Eating disorder [Recovering/Resolving]
  - Abdominal pain upper [Recovering/Resolving]
  - Nausea [Recovering/Resolving]
  - Vomiting [Recovering/Resolving]
  - Diarrhoea [Recovering/Resolving]
  - Somnolence [Recovering/Resolving]
  - Sedation [Recovering/Resolving]
  - Pneumothorax [Recovering/Resolving]
  - Weight decreased [Recovering/Resolving]
  - Psychiatric symptom [Unknown]
  - Headache [Recovering/Resolving]
